APPROVED DRUG PRODUCT: LORAZEPAM
Active Ingredient: LORAZEPAM
Strength: 2MG
Dosage Form/Route: TABLET;ORAL
Application: A070474 | Product #001
Applicant: MUTUAL PHARMACEUTICAL CO INC
Approved: Dec 10, 1985 | RLD: No | RS: No | Type: DISCN